FAERS Safety Report 10015983 (Version 1)
Quarter: 2014Q1

REPORT INFORMATION
  Report Type: Spontaneous
  Country: BR (occurrence: BR)
  Receive Date: 20140317
  Receipt Date: 20140317
  Transmission Date: 20141002
  Serious: Yes (Hospitalization, Other)
  Sender: FDA-Public Use
  Company Number: BR-PFIZER INC-2014073486

PATIENT
  Age: 66 Year
  Sex: Female
  Weight: 73 kg

DRUGS (5)
  1. LIPITOR [Suspect]
     Dosage: 40 MG, DAILY
     Dates: start: 20131212
  2. METFORMIN [Concomitant]
     Dosage: 2 DF (TABLETS), DAILY
     Dates: start: 201312
  3. OLMETEC [Concomitant]
     Dosage: 1 DF (TABLET), DAILY
     Dates: start: 201312
  4. SOTACOR [Concomitant]
     Dosage: 1 DF (TABLET), DAILY
     Dates: start: 201312
  5. XARELTO [Concomitant]
     Dosage: 1 DF (TABLET), DAILY
     Dates: start: 201312

REACTIONS (1)
  - Pneumonia [Unknown]
